FAERS Safety Report 17896386 (Version 1)
Quarter: 2020Q2

REPORT INFORMATION
  Report Type: Spontaneous
  Country: US (occurrence: US)
  Receive Date: 20200615
  Receipt Date: 20200615
  Transmission Date: 20200714
  Serious: Yes (Other)
  Sender: FDA-Public Use
  Company Number: US-PURDUE-USA-2020-0154464

PATIENT
  Sex: Male

DRUGS (4)
  1. HYDROCODONE [Suspect]
     Active Substance: HYDROCODONE
     Indication: FALL
     Dosage: 10 MG, 12 TIMES DAILY
     Route: 048
     Dates: start: 2005
  2. HYDROCODONE [Suspect]
     Active Substance: HYDROCODONE
     Indication: PAIN
  3. HYSINGLA ER [Suspect]
     Active Substance: HYDROCODONE BITARTRATE
     Indication: FALL
     Dosage: 20 MG, BID
     Route: 048
     Dates: start: 2015
  4. HYSINGLA ER [Suspect]
     Active Substance: HYDROCODONE BITARTRATE
     Indication: PAIN

REACTIONS (8)
  - Intestinal polyp [Unknown]
  - Hernia [Unknown]
  - Constipation [Unknown]
  - Therapeutic product effect decreased [Unknown]
  - Malabsorption [Unknown]
  - Dysphagia [Unknown]
  - Colonoscopy [Unknown]
  - Weight decreased [Unknown]

NARRATIVE: CASE EVENT DATE: 2016
